FAERS Safety Report 21067232 (Version 2)
Quarter: 2022Q4

REPORT INFORMATION
  Report Type: Spontaneous
  Country: CA (occurrence: CA)
  Receive Date: 20220712
  Receipt Date: 20221117
  Transmission Date: 20230113
  Serious: Yes (Hospitalization, Other)
  Sender: FDA-Public Use
  Company Number: CA-SAMSUNG BIOEPIS-SB-2022-16454

PATIENT
  Age: 38 Year
  Sex: Male
  Weight: 100 kg

DRUGS (1)
  1. INFLIXIMAB [Suspect]
     Active Substance: INFLIXIMAB
     Indication: Crohn^s disease
     Dosage: CYCLICAL
     Route: 042

REACTIONS (16)
  - Abdominal pain [Recovered/Resolved]
  - Eye infection [Recovered/Resolved]
  - Nasopharyngitis [Recovered/Resolved]
  - Nephrolithiasis [Recovered/Resolved]
  - Odynophagia [Recovered/Resolved]
  - Oropharyngeal pain [Recovered/Resolved]
  - Palpitations [Recovered/Resolved]
  - Sinusitis [Recovered/Resolved]
  - Snoring [Recovered/Resolved]
  - COVID-19 [Recovered/Resolved]
  - Infection [Recovered/Resolved]
  - Infusion related reaction [Recovered/Resolved]
  - Pain [Recovered/Resolved]
  - Throat tightness [Recovered/Resolved]
  - Inappropriate schedule of product administration [Recovered/Resolved]
  - Off label use [Recovered/Resolved]
